FAERS Safety Report 23919652 (Version 1)
Quarter: 2024Q2

REPORT INFORMATION
  Report Type: Spontaneous
  Country: GB (occurrence: GB)
  Receive Date: 20240530
  Receipt Date: 20240530
  Transmission Date: 20240716
  Serious: Yes (Other)
  Sender: FDA-Public Use
  Company Number: GB-MHRA-TPP1514765C22275880YC1715684140273

PATIENT
  Age: 61 Year
  Sex: Female
  Weight: 66 kg

DRUGS (15)
  1. ROSUVASTATIN CALCIUM [Suspect]
     Active Substance: ROSUVASTATIN CALCIUM
     Indication: Product used for unknown indication
     Dosage: 5 MILLIGRAM, ONE TABLET THREE TIMES A WEEK MON, WED AND FRI ...
     Route: 048
     Dates: start: 20240131, end: 20240514
  2. AMLODIPINE [Concomitant]
     Active Substance: AMLODIPINE BESYLATE
     Indication: Product used for unknown indication
     Dosage: 1 DOSAGE FORM, ONCE A DAY, ONE TO BE TAKEN EACH DAY
     Route: 065
     Dates: start: 20231025
  3. BETESIL [Concomitant]
     Indication: Product used for unknown indication
     Dosage: UNK, APPLY ON NEW ERROSIONS DAILY FOR ONE MONTH AS P...
     Route: 065
     Dates: start: 20231025
  4. CANDESARTAN [Concomitant]
     Active Substance: CANDESARTAN
     Indication: Product used for unknown indication
     Dosage: 1 DOSAGE FORM, ONCE A DAY, ONE TO BE TAKEN EACH DAY
     Route: 065
     Dates: start: 20231025
  5. COCODAMOL [Concomitant]
     Active Substance: ACETAMINOPHEN\CODEINE PHOSPHATE
     Indication: Product used for unknown indication
     Dosage: 1 DOSAGE FORM, FOUR TIMES/DAY, ONE TO BE TAKEN FOUR TIMES A DAY
     Route: 065
     Dates: start: 20231025
  6. FEXOFENADINE [Concomitant]
     Active Substance: FEXOFENADINE HYDROCHLORIDE
     Indication: Product used for unknown indication
     Dosage: 1 DOSAGE FORM, ONCE A DAY, ONE TO BE TAKEN EACH DAY
     Route: 065
     Dates: start: 20231025
  7. IBUPROFEN [Concomitant]
     Active Substance: IBUPROFEN
     Indication: Product used for unknown indication
     Dosage: UNK, APPLY THREE TIMES DAILY AS REQUIRED
     Route: 065
     Dates: start: 20231025
  8. LANSOPRAZOLE [Concomitant]
     Active Substance: LANSOPRAZOLE
     Indication: Product used for unknown indication
     Dosage: 1 DOSAGE FORM, ONCE A DAY, ONE TO BE TAKEN EACH MORNING
     Route: 065
     Dates: start: 20231025
  9. MELATONIN [Concomitant]
     Active Substance: MELATONIN
     Indication: Product used for unknown indication
     Dosage: UNK, START WITH ONE TABLET AT NIGHT - DOSE TAKEN 30-...
     Route: 065
     Dates: start: 20240514
  10. NAPROXEN [Concomitant]
     Active Substance: NAPROXEN
     Indication: Product used for unknown indication
     Dosage: 1 DOSAGE FORM, TWO TIMES A DAY, ONE TO BE TAKEN TWICE A DAY WITH FOOD
     Route: 065
     Dates: start: 20231025
  11. PRAVASTATIN [Concomitant]
     Active Substance: PRAVASTATIN
     Indication: Blood cholesterol increased
     Dosage: 1 DOSAGE FORM, ONCE A DAY, TAKE ONE AT NIGHT FOR CHOLESTEROL REDUCTION
     Route: 065
     Dates: start: 20240514
  12. PREGABALIN [Concomitant]
     Active Substance: PREGABALIN
     Indication: Product used for unknown indication
     Dosage: UNK, ONE TO BE TAKEN TWICE A DAY - TAKE SECOND DOSE ...
     Route: 065
     Dates: start: 20231025
  13. TEGRETOL [Concomitant]
     Active Substance: CARBAMAZEPINE
     Indication: Product used for unknown indication
     Dosage: UNK, ONE A DAY FOR TWO WEEKS AND THEN INCREASE TO TW...
     Route: 065
     Dates: start: 20231025
  14. VENLAFAXINE [Concomitant]
     Active Substance: VENLAFAXINE HYDROCHLORIDE
     Indication: Product used for unknown indication
     Dosage: UNK, ONE TO BE TAKEN EACH DAY IN THE MORNING (DAILY ...
     Route: 065
     Dates: start: 20231025
  15. ZOPICLONE [Concomitant]
     Active Substance: ZOPICLONE
     Indication: Product used for unknown indication
     Dosage: 1 DOSAGE FORM, ONCE A DAY, ONE TO BE TAKEN AT NIGHT- ENROLLED IN SLEEP STA...
     Route: 065
     Dates: start: 20231025

REACTIONS (2)
  - Pain in extremity [Recovered/Resolved]
  - Musculoskeletal pain [Unknown]

NARRATIVE: CASE EVENT DATE: 20240304
